FAERS Safety Report 7137317-6 (Version None)
Quarter: 2010Q4

REPORT INFORMATION
  Report Type: 
  Country: None (occurrence: None)
  Receive Date: 20101206
  Receipt Date: 20101123
  Transmission Date: 20110411
  Serious: Yes (Other)
  Sender: FDA-Public Use
  Company Number: PHHY2010AR64541

PATIENT
  Sex: Female

DRUGS (1)
  1. ACLASTA [Suspect]
     Indication: OSTEOPOROSIS
     Dosage: 5 MG
     Dates: start: 20080101

REACTIONS (7)
  - APTYALISM [None]
  - BONE DENSITY DECREASED [None]
  - BONE PAIN [None]
  - DRY MOUTH [None]
  - DYSGEUSIA [None]
  - GINGIVAL RECESSION [None]
  - MYALGIA [None]
